FAERS Safety Report 8131377-1 (Version None)
Quarter: 2012Q1

REPORT INFORMATION
  Report Type: 
  Country: None (occurrence: None)
  Receive Date: 20120210
  Receipt Date: 20120210
  Transmission Date: 20120608
  Serious: No
  Sender: FDA-Public Use
  Company Number: None

PATIENT
  Age: 63 Year
  Sex: Male
  Weight: 93.2 kg

DRUGS (1)
  1. DICLOFENAC SODIUM [Suspect]
     Indication: HEPATIC ENZYME INCREASED
     Dosage: MG BID PO
     Route: 048
     Dates: start: 20110828, end: 20111214

REACTIONS (1)
  - HEPATIC ENZYME INCREASED [None]
